FAERS Safety Report 4935727-6 (Version None)
Quarter: 2006Q1

REPORT INFORMATION
  Report Type: 
  Country: None (occurrence: None)
  Receive Date: 20060307
  Receipt Date: 20051115
  Transmission Date: 20060701
  Serious: No
  Sender: FDA-Public Use
  Company Number: US-GLAXOSMITHKLINE-A0583079A

PATIENT
  Age: 59 Year
  Sex: Male
  Weight: 72.7 kg

DRUGS (3)
  1. REQUIP [Suspect]
     Indication: PARKINSON'S DISEASE
     Dosage: 20MG PER DAY
     Route: 048
     Dates: start: 20010515, end: 20051101
  2. SINEMET [Concomitant]
     Route: 048
     Dates: start: 20030101
  3. AMANTADINE HCL [Concomitant]
     Route: 048
     Dates: start: 20010101

REACTIONS (1)
  - GAMBLING [None]
